FAERS Safety Report 8507311-9 (Version None)
Quarter: 2012Q3

REPORT INFORMATION
  Report Type: 
  Country: None (occurrence: None)
  Receive Date: 20120712
  Receipt Date: 20120706
  Transmission Date: 20120928
  Serious: Yes (Death, Hospitalization)
  Sender: FDA-Public Use
  Company Number: US-FRI-1000036932

PATIENT
  Age: 62 Year
  Sex: Male

DRUGS (8)
  1. DALIRESP [Suspect]
     Indication: CHRONIC OBSTRUCTIVE PULMONARY DISEASE
     Dosage: 500 MCG
     Route: 048
     Dates: start: 20120510
  2. PROAIR HFA [Concomitant]
     Indication: CHRONIC OBSTRUCTIVE PULMONARY DISEASE
  3. FLOMAX [Concomitant]
  4. LEXAPRO [Concomitant]
     Indication: DEPRESSION
  5. SYMBICORT [Concomitant]
     Indication: CHRONIC OBSTRUCTIVE PULMONARY DISEASE
  6. SPIRIVA [Concomitant]
     Indication: CHRONIC OBSTRUCTIVE PULMONARY DISEASE
  7. CRESTOR [Concomitant]
     Indication: BLOOD CHOLESTEROL INCREASED
  8. XYZAL [Concomitant]
     Indication: SEASONAL ALLERGY

REACTIONS (7)
  - TREMOR [None]
  - ANXIETY [None]
  - DEATH [None]
  - HEADACHE [None]
  - PANIC ATTACK [None]
  - DIZZINESS [None]
  - INSOMNIA [None]
